FAERS Safety Report 5223851-2 (Version None)
Quarter: 2007Q1

REPORT INFORMATION
  Report Type: 
  Country: None (occurrence: None)
  Receive Date: 20070126
  Receipt Date: 20070119
  Transmission Date: 20070707
  Serious: Yes (Death, Hospitalization)
  Sender: FDA-Public Use
  Company Number: 230002K07BRA

PATIENT
  Age: 51 Year
  Sex: Male

DRUGS (1)
  1. REBIF [Suspect]
     Dates: start: 20030301, end: 20061228

REACTIONS (2)
  - RENAL DISORDER [None]
  - WEIGHT DECREASED [None]
